FAERS Safety Report 9100650 (Version 3)
Quarter: 2013Q2

REPORT INFORMATION
  Report Type: Spontaneous
  Country: US (occurrence: US)
  Receive Date: 20130214
  Receipt Date: 20130415
  Transmission Date: 20140414
  Serious: Yes (Other)
  Sender: FDA-Public Use
  Company Number: PHEH2013US003393

PATIENT
  Age: 66 Year
  Sex: Female
  Weight: 50 kg

DRUGS (18)
  1. RECLAST [Suspect]
     Indication: OSTEOPOROSIS
     Dosage: 5 MG/ 100 ML ANNUALLY
     Route: 042
     Dates: start: 20130122
  2. PROTONIX [Concomitant]
     Dosage: 40 MG, UNK
  3. FLINTSTONES MULTIPLE VITAMINS [Concomitant]
     Dosage: UNK UKN, UNK
  4. NEURONTIN [Concomitant]
     Dosage: 100 MG, TID
  5. SYNTHROID [Concomitant]
     Dosage: 175 MCG, 6 DAYS A WEEK
     Route: 048
  6. ASPIRIN [Concomitant]
     Dosage: 81 MG, UNK
     Route: 048
  7. FISH OIL [Concomitant]
     Dosage: UNK
  8. CALTRATE [Concomitant]
     Dosage: 400 UKN, UNK
     Route: 048
  9. ALIGN [Concomitant]
     Dosage: 4 MG, QD
  10. FLEXERIL [Concomitant]
     Dosage: 2 MG, UNK
  11. FLEXERIL [Concomitant]
     Dosage: UNK UKN, UNK
  12. ULTRAM [Concomitant]
     Dosage: 50 MG, UNK
     Route: 048
  13. BONIVA [Concomitant]
     Dosage: 150 MG, MONTHLY
     Route: 048
  14. PREMARIN [Concomitant]
     Dosage: 0.625 MG, UNK
  15. REPLENS [Concomitant]
     Dosage: UNK
  16. TRIADERM [Concomitant]
     Dosage: UNK
  17. DAILY MULTIVITAMIN [Concomitant]
     Dosage: UNK
  18. CALCIUM [Concomitant]
     Dosage: UNK

REACTIONS (18)
  - Weight increased [Unknown]
  - Diarrhoea [Recovered/Resolved]
  - Haemorrhoids [Unknown]
  - Food allergy [Unknown]
  - Thyroid disorder [Unknown]
  - Constipation [Unknown]
  - Abdominal pain [Unknown]
  - Reflux gastritis [Unknown]
  - Influenza like illness [Unknown]
  - Malaise [Unknown]
  - Chills [Unknown]
  - Fatigue [Unknown]
  - Pain [Unknown]
  - Arthritis [Unknown]
  - Joint stiffness [Unknown]
  - Arthralgia [Unknown]
  - Rash [Unknown]
  - Headache [Unknown]
